FAERS Safety Report 13366502 (Version 1)
Quarter: 2017Q1

REPORT INFORMATION
  Report Type: Report from Study
  Country: PL (occurrence: PL)
  Receive Date: 20170323
  Receipt Date: 20170323
  Transmission Date: 20170429
  Serious: Yes (Life-Threatening, Hospitalization, Disabling)
  Sender: FDA-Public Use
  Company Number: PL-B.I. PHARMACEUTICALS,INC./RIDGEFIELD-2017-BI-013482

PATIENT
  Age: 68 Year
  Sex: Male

DRUGS (1)
  1. DABIGATRAN [Suspect]
     Active Substance: DABIGATRAN
     Indication: ATRIAL FIBRILLATION
     Route: 065

REACTIONS (4)
  - Coronary artery disease [Recovered/Resolved with Sequelae]
  - Right ventricular failure [Not Recovered/Not Resolved]
  - Cardiac tamponade [Recovered/Resolved]
  - Aortic stenosis [Recovered/Resolved with Sequelae]

NARRATIVE: CASE EVENT DATE: 20170213
